FAERS Safety Report 20072216 (Version 1)
Quarter: 2021Q4

REPORT INFORMATION
  Report Type: Report from Study
  Country: US (occurrence: US)
  Receive Date: 20211116
  Receipt Date: 20211116
  Transmission Date: 20220303
  Serious: No
  Sender: FDA-Public Use
  Company Number: US-NOVARTISTESTPH-NVSC2021US253756

PATIENT
  Sex: Female

DRUGS (1)
  1. PIQRAY [Suspect]
     Active Substance: ALPELISIB
     Indication: Neoplasm malignant
     Dosage: UNK
     Route: 048

REACTIONS (5)
  - Cancer pain [Unknown]
  - Hyperglycaemia [Unknown]
  - Dyspnoea [Unknown]
  - Chest pain [Unknown]
  - Wrong technique in product usage process [Unknown]
